FAERS Safety Report 8630433 (Version 4)
Quarter: 2013Q3

REPORT INFORMATION
  Report Type: Report from Study
  Country: AR (occurrence: AR)
  Receive Date: 20120622
  Receipt Date: 20130704
  Transmission Date: 20140515
  Serious: Yes (Other)
  Sender: FDA-Public Use
  Company Number: AR-ROCHE-1080416

PATIENT
  Sex: Male

DRUGS (1)
  1. RANIBIZUMAB [Suspect]
     Indication: MACULOPATHY
     Route: 050
     Dates: start: 201007

REACTIONS (7)
  - Maculopathy [Recovering/Resolving]
  - Disease progression [Recovering/Resolving]
  - Asthenopia [Not Recovered/Not Resolved]
  - Visual acuity reduced [Not Recovered/Not Resolved]
  - Eye haemorrhage [Recovering/Resolving]
  - Neoplasm malignant [Recovering/Resolving]
  - Cardiac disorder [Recovering/Resolving]
